FAERS Safety Report 18860856 (Version 1)
Quarter: 2021Q1

REPORT INFORMATION
  Report Type: Report from Study
  Country: BD (occurrence: BD)
  Receive Date: 20210208
  Receipt Date: 20210208
  Transmission Date: 20210420
  Serious: Yes (Death)
  Sender: FDA-Public Use
  Company Number: NVSC2021BD011250

PATIENT
  Sex: Female

DRUGS (1)
  1. ASUNRA [Suspect]
     Active Substance: DEFERASIROX
     Indication: THALASSAEMIA
     Dosage: UNK
     Route: 065

REACTIONS (2)
  - Diarrhoea [Unknown]
  - Transfusion related complication [Fatal]
